FAERS Safety Report 4934035-7 (Version None)
Quarter: 2006Q1

REPORT INFORMATION
  Report Type: 
  Country: None (occurrence: None)
  Receive Date: 20060303
  Receipt Date: 20060220
  Transmission Date: 20060701
  Serious: Yes (Life-Threatening, Hospitalization)
  Sender: FDA-Public Use
  Company Number: HQWYE932622FEB06

PATIENT
  Age: 73 Year
  Sex: Female

DRUGS (12)
  1. PANTOZOL (PANTOPRAZOLE, TABLET, DELAYED RELEASE) [Suspect]
     Indication: DUODENAL ULCER
     Dosage: 1 DOSAGE FORM 2X PER 1 DAY, ORAL
     Route: 048
     Dates: end: 20051213
  2. PANTOZOL (PANTOPRAZOLE, TABLET, DELAYED RELEASE) [Suspect]
     Indication: HELICOBACTER INFECTION
     Dosage: 1 DOSAGE FORM 2X PER 1 DAY, ORAL
     Route: 048
     Dates: end: 20051213
  3. AMOXICILLIN [Suspect]
     Indication: DUODENAL ULCER
     Dosage: 1 DOSAGE FORM 2X PER 1 DAY, ORAL
     Route: 048
     Dates: end: 20051213
  4. AMOXICILLIN [Suspect]
     Indication: HELICOBACTER INFECTION
     Dosage: 1 DOSAGE FORM 2X PER 1 DAY, ORAL
     Route: 048
     Dates: end: 20051213
  5. CLARITHROMYCIN [Suspect]
     Indication: DUODENAL ULCER
     Dosage: 1 DOSAGE FORM 2X PER 1 DAY, ORAL
     Route: 048
     Dates: end: 20051213
  6. CLARITHROMYCIN [Suspect]
     Indication: HELICOBACTER INFECTION
     Dosage: 1 DOSAGE FORM 2X PER 1 DAY, ORAL
     Route: 048
     Dates: end: 20051213
  7. KLACID (CLARITHROMYCIN, ) [Suspect]
     Indication: PYREXIA
     Dosage: 500 MG 1 X PER 1 DAY, INTRAVENOUS
     Route: 042
     Dates: start: 20051214, end: 20051214
  8. LISINOPRIL [Concomitant]
  9. VERAPAMIL [Concomitant]
  10. HYDROCHLOROTHIAZIDE [Concomitant]
  11. ENOXAPARIN SODIUM [Concomitant]
  12. DIGOXIN [Concomitant]

REACTIONS (6)
  - CEREBRAL INFARCTION [None]
  - CONDITION AGGRAVATED [None]
  - ELECTROCARDIOGRAM QT PROLONGED [None]
  - PYREXIA [None]
  - RESUSCITATION [None]
  - VENTRICULAR FIBRILLATION [None]
